FAERS Safety Report 20523542 (Version 2)
Quarter: 2022Q2

REPORT INFORMATION
  Report Type: Spontaneous
  Country: US (occurrence: US)
  Receive Date: 20220228
  Receipt Date: 20220412
  Transmission Date: 20220721
  Serious: Yes (Other)
  Sender: FDA-Public Use
  Company Number: US-NOVOPROD-893617

PATIENT
  Sex: Female

DRUGS (1)
  1. NOVOLOG [Suspect]
     Active Substance: INSULIN ASPART
     Indication: Type 1 diabetes mellitus
     Dosage: SLIDING SCALE
     Route: 058

REACTIONS (6)
  - Glaucoma [Unknown]
  - Arthralgia [Unknown]
  - Blood glucose increased [Unknown]
  - Tremor [Unknown]
  - Drug ineffective [Unknown]
  - Liquid product physical issue [Unknown]
